FAERS Safety Report 17130274 (Version 1)
Quarter: 2019Q4

REPORT INFORMATION
  Report Type: Spontaneous
  Country: CN (occurrence: CN)
  Receive Date: 20191209
  Receipt Date: 20191209
  Transmission Date: 20200122
  Serious: Yes (Other)
  Sender: FDA-Public Use
  Company Number: CN-PFIZER INC-2019526804

PATIENT
  Age: 48 Year
  Sex: Female
  Weight: 64 kg

DRUGS (4)
  1. CYTOSAR [Suspect]
     Active Substance: CYTARABINE
     Indication: ACUTE LEUKAEMIA
     Dosage: 75 MG, 2X/DAY
     Route: 041
     Dates: start: 20191112, end: 20191116
  2. GLUCOSE [Concomitant]
     Active Substance: DEXTROSE
     Indication: VEHICLE SOLUTION USE
     Dosage: 100 ML, 1X/DAY ON D1-3
     Route: 041
     Dates: start: 20191112, end: 20191114
  3. ZAVEDOS [Suspect]
     Active Substance: IDARUBICIN
     Indication: ACUTE LEUKAEMIA
     Dosage: 10 MG, 1X/DAY
     Route: 041
     Dates: start: 20191112, end: 20191114
  4. GLUCOSE [Concomitant]
     Active Substance: DEXTROSE
     Dosage: 250 ML, 2X/DAY (Q12H) ON D1-5
     Route: 041
     Dates: start: 20191112, end: 20191116

REACTIONS (3)
  - Oropharyngeal pain [Recovering/Resolving]
  - Bone marrow failure [Recovering/Resolving]
  - Pyrexia [Recovering/Resolving]

NARRATIVE: CASE EVENT DATE: 20191120
